FAERS Safety Report 4819490-5 (Version None)
Quarter: 2005Q4

REPORT INFORMATION
  Report Type: 
  Country: None (occurrence: None)
  Receive Date: 20051031
  Receipt Date: 20050621
  Transmission Date: 20060501
  Serious: No
  Sender: FDA-Public Use
  Company Number: 2005PV000102

PATIENT
  Age: 35 Year
  Sex: Female
  Weight: 67.1324 kg

DRUGS (7)
  1. SYMLIN [Suspect]
     Indication: DIABETES MELLITUS
     Dosage: 30 UG; TID; SC
     Route: 058
     Dates: start: 20050527
  2. HUMALOG [Concomitant]
  3. TIAZAC [Concomitant]
  4. ATACAND HCT [Concomitant]
  5. CLONIDINE [Concomitant]
  6. FOLGARD [Concomitant]
  7. ALLOPURINOL [Concomitant]

REACTIONS (5)
  - DECREASED APPETITE [None]
  - DIZZINESS [None]
  - HYPOTENSION [None]
  - NAUSEA [None]
  - PALPITATIONS [None]
